FAERS Safety Report 5578619-4 (Version None)
Quarter: 2007Q4

REPORT INFORMATION
  Report Type: 
  Country: None (occurrence: None)
  Receive Date: 20071227
  Receipt Date: 20071227
  Transmission Date: 20080405
  Serious: Yes (Other)
  Sender: FDA-Public Use
  Company Number: None

PATIENT
  Age: 76 Year
  Sex: Male
  Weight: 106 kg

DRUGS (3)
  1. AMINOCAPROIC ACID 5G/20 ML AMERICAN REGENT [Suspect]
     Indication: HAEMORRHAGE
     Dosage: AMINOCAPROIC ACID 2G/HR IV DRIP
     Route: 041
     Dates: start: 20071205, end: 20071205
  2. AMINOCAPROIC ACID 5G/20 ML AMERICAN REGENT [Suspect]
     Indication: PROPHYLAXIS
     Dosage: AMINOCAPROIC ACID 2G/HR IV DRIP
     Route: 041
     Dates: start: 20071205, end: 20071205
  3. TRANEXAMIC ACID 1G/10ML PFIZER [Suspect]
     Indication: PROPHYLAXIS
     Dosage: TRANEXAMIC ACID 400MG/HR IV DRIP
     Route: 041
     Dates: start: 20071205, end: 20071205

REACTIONS (3)
  - GRAND MAL CONVULSION [None]
  - MEDICATION ERROR [None]
  - WRONG DRUG ADMINISTERED [None]
